FAERS Safety Report 11110801 (Version 2)
Quarter: 2015Q2

REPORT INFORMATION
  Report Type: Spontaneous
  Country: DE (occurrence: DE)
  Receive Date: 20150513
  Receipt Date: 20150522
  Transmission Date: 20150821
  Serious: Yes (Other)
  Sender: FDA-Public Use
  Company Number: DE-TEVA-561349GER

PATIENT
  Age: 48 Year
  Sex: Male

DRUGS (4)
  1. ETOPOSIDE. [Suspect]
     Active Substance: ETOPOSIDE
     Indication: TESTICULAR SEMINOMA (PURE) STAGE III
     Route: 065
  2. CISPLATIN. [Suspect]
     Active Substance: CISPLATIN
     Indication: TESTICULAR SEMINOMA (PURE) STAGE III
     Dosage: THREE CYCLES OF CHEMOTHERAPY WERE ADMINISTERED WITHOUT DELAY BETWEEN CYCLES
     Route: 065
  3. BLEOMYCIN [Suspect]
     Active Substance: BLEOMYCIN SULFATE
     Indication: TESTICULAR SEMINOMA (PURE) STAGE III
     Route: 065
  4. ENOXAPARIN SODIUM. [Concomitant]
     Active Substance: ENOXAPARIN SODIUM
     Indication: ANTICOAGULANT THERAPY
     Dosage: 40 MILLIGRAM DAILY;
     Route: 065

REACTIONS (7)
  - Subclavian vein thrombosis [Unknown]
  - Splenic infarction [Unknown]
  - Hiccups [Unknown]
  - Thrombosis in device [Unknown]
  - Alopecia [Unknown]
  - Thalamic infarction [Unknown]
  - Pneumonitis [Recovering/Resolving]
